FAERS Safety Report 20354886 (Version 1)
Quarter: 2022Q1

REPORT INFORMATION
  Report Type: Spontaneous
  Country: NL (occurrence: NL)
  Receive Date: 20220120
  Receipt Date: 20220120
  Transmission Date: 20220423
  Serious: Yes (Death, Other)
  Sender: FDA-Public Use
  Company Number: NL-AMGEN-NLDSP2022006350

PATIENT

DRUGS (4)
  1. TRASTUZUMAB [Suspect]
     Active Substance: TRASTUZUMAB
     Indication: HER2 positive salivary gland cancer
     Route: 042
  2. TRASTUZUMAB [Suspect]
     Active Substance: TRASTUZUMAB
     Indication: Off label use
     Dosage: UNK
     Route: 058
  3. DOCETAXEL [Concomitant]
     Active Substance: DOCETAXEL
  4. PERTUZUMAB [Concomitant]
     Active Substance: PERTUZUMAB

REACTIONS (45)
  - Lymphocyte count decreased [Unknown]
  - Pharyngeal inflammation [Unknown]
  - Enterocolitis infectious [Unknown]
  - Hyponatraemia [Unknown]
  - Cardiac failure [Unknown]
  - Pneumonia [Unknown]
  - Skin infection [Unknown]
  - Neutrophil count decreased [Unknown]
  - White blood cell count decreased [Unknown]
  - Neutropenia [Unknown]
  - Death [Fatal]
  - Aspartate aminotransferase increased [Unknown]
  - Alanine aminotransferase increased [Unknown]
  - Peripheral sensory neuropathy [Unknown]
  - Alopecia [Unknown]
  - Dysphagia [Unknown]
  - Constipation [Unknown]
  - Salivary gland cancer [Unknown]
  - Urinary tract infection [Unknown]
  - Stomatitis [Unknown]
  - Platelet count decreased [Unknown]
  - Anaemia [Unknown]
  - Dysgeusia [Unknown]
  - Nausea [Unknown]
  - Decreased appetite [Unknown]
  - Abdominal pain [Unknown]
  - Diarrhoea [Unknown]
  - Fatigue [Unknown]
  - Nail disorder [Unknown]
  - Epistaxis [Unknown]
  - Conjunctivitis [Unknown]
  - Dermatitis acneiform [Unknown]
  - Weight decreased [Unknown]
  - Bone pain [Unknown]
  - Dry eye [Unknown]
  - Dyspnoea [Unknown]
  - Recall phenomenon [Unknown]
  - Oedema peripheral [Unknown]
  - Cough [Unknown]
  - Myalgia [Unknown]
  - Muscle spasms [Unknown]
  - Lymphoedema [Unknown]
  - Headache [Unknown]
  - Therapy partial responder [Unknown]
  - Off label use [Unknown]
